FAERS Safety Report 25812300 (Version 1)
Quarter: 2025Q3

REPORT INFORMATION
  Report Type: Spontaneous
  Country: US (occurrence: None)
  Receive Date: 20250916
  Receipt Date: 20250916
  Transmission Date: 20251021
  Serious: Yes (Life-Threatening, Hospitalization, Disabling)
  Sender: FDA-CTU
  Company Number: None

PATIENT
  Age: 64 Year
  Sex: Male
  Weight: 101.25 kg

DRUGS (2)
  1. LEQVIO [Suspect]
     Active Substance: INCLISIRAN SODIUM
     Indication: Blood cholesterol
     Route: 058
     Dates: start: 20230607, end: 20230607
  2. TYLENOL [Concomitant]
     Active Substance: ACETAMINOPHEN

REACTIONS (13)
  - Arthralgia [None]
  - Pain in jaw [None]
  - Deafness [None]
  - Speech disorder [None]
  - Middle ear effusion [None]
  - Pneumonia [None]
  - Lung neoplasm [None]
  - Pulmonary mass [None]
  - Ocular hyperaemia [None]
  - Pain [None]
  - Hepatomegaly [None]
  - Metastatic neoplasm [None]
  - Petechiae [None]

NARRATIVE: CASE EVENT DATE: 20230607
